FAERS Safety Report 14944926 (Version 1)
Quarter: 2018Q2

REPORT INFORMATION
  Report Type: Spontaneous
  Country: US (occurrence: US)
  Receive Date: 20180529
  Receipt Date: 20180529
  Transmission Date: 20180711
  Serious: Yes (Hospitalization)
  Sender: FDA-Public Use
  Company Number: US-ABBVIE-18P-163-2367132-00

PATIENT
  Age: 75 Year
  Sex: Male

DRUGS (1)
  1. NIASPAN [Suspect]
     Active Substance: NIACIN
     Indication: BLOOD CHOLESTEROL INCREASED
     Route: 048
     Dates: start: 2006, end: 2010

REACTIONS (7)
  - Acute hepatic failure [Recovered/Resolved]
  - Coagulation test abnormal [Recovered/Resolved]
  - Hepatic encephalopathy [Recovered/Resolved]
  - Hepatic fibrosis [Recovered/Resolved]
  - Liver disorder [Recovered/Resolved]
  - Hepatitis [Recovered/Resolved]
  - Hepatic steatosis [Recovered/Resolved]

NARRATIVE: CASE EVENT DATE: 2010
